FAERS Safety Report 4939269-3 (Version None)
Quarter: 2006Q1

REPORT INFORMATION
  Report Type: 
  Country: None (occurrence: None)
  Receive Date: 20060306
  Receipt Date: 20060222
  Transmission Date: 20060701
  Serious: Yes (Death)
  Sender: FDA-Public Use
  Company Number: 2006017309

PATIENT
  Age: 77 Year
  Sex: Male

DRUGS (7)
  1. VFEND [Suspect]
     Indication: INFECTION
     Dosage: 400 MG INTRAVENOUS
     Route: 042
     Dates: start: 20060119
  2. ZOVIRAX [Suspect]
     Indication: ILL-DEFINED DISORDER
     Dosage: 3 IN 1 D
     Dates: start: 20060129, end: 20060203
  3. BETAMETHASONE [Suspect]
     Indication: ILL-DEFINED DISORDER
     Dosage: 16 MG (16 MG, 1 IN 1 D)
     Dates: start: 20060201, end: 20060203
  4. ITRACONAZOLE [Concomitant]
  5. MEROPEN (MEROPENEM) [Concomitant]
  6. ALL OTHER THERAPEUTIC PRODUCTS (ALL OTHER THERAPEUTIC PRODUCTS) [Concomitant]
  7. MODACIN (CEFTAZIDIME) [Concomitant]

REACTIONS (6)
  - ABNORMAL BEHAVIOUR [None]
  - ASPERGILLOSIS [None]
  - CONCOMITANT DISEASE AGGRAVATED [None]
  - EUPHORIC MOOD [None]
  - RESTLESSNESS [None]
  - TREATMENT NONCOMPLIANCE [None]
